FAERS Safety Report 11489169 (Version 1)
Quarter: 2015Q3

REPORT INFORMATION
  Report Type: Spontaneous
  Country: US (occurrence: US)
  Receive Date: 20150910
  Receipt Date: 20150910
  Transmission Date: 20151125
  Serious: Yes (Life-Threatening, Hospitalization, Other)
  Sender: FDA-Public Use
  Company Number: US-ELI_LILLY_AND_COMPANY-US201509001847

PATIENT
  Sex: Female

DRUGS (8)
  1. HUMALOG [Suspect]
     Active Substance: INSULIN LISPRO
     Indication: TYPE 2 DIABETES MELLITUS
     Dosage: 10 U, PRN
     Route: 065
  2. LEVEMIR [Concomitant]
     Active Substance: INSULIN DETEMIR
  3. HUMALOG [Suspect]
     Active Substance: INSULIN LISPRO
     Indication: PRODUCT USED FOR UNKNOWN INDICATION
     Route: 065
  4. METFORMIN [Concomitant]
     Active Substance: METFORMIN HYDROCHLORIDE
  5. OMEPRAZOLE. [Concomitant]
     Active Substance: OMEPRAZOLE
  6. CARVEDILOL. [Concomitant]
     Active Substance: CARVEDILOL
  7. HUMALOG [Suspect]
     Active Substance: INSULIN LISPRO
     Indication: TYPE 2 DIABETES MELLITUS
     Route: 065
  8. LORAZEPAM. [Concomitant]
     Active Substance: LORAZEPAM
     Indication: SLEEP DISORDER

REACTIONS (9)
  - Pneumonia [Unknown]
  - Fall [Unknown]
  - Hypoglycaemic unconsciousness [Unknown]
  - Blood glucose increased [Unknown]
  - Atrial fibrillation [Unknown]
  - Head injury [Unknown]
  - Intercepted product selection error [Unknown]
  - Aspiration [Unknown]
  - Memory impairment [Unknown]

NARRATIVE: CASE EVENT DATE: 201408
